FAERS Safety Report 13702998 (Version 1)
Quarter: 2017Q2

REPORT INFORMATION
  Report Type: Spontaneous
  Country: IT (occurrence: IT)
  Receive Date: 20170629
  Receipt Date: 20170629
  Transmission Date: 20170830
  Serious: Yes (Hospitalization)
  Sender: FDA-Public Use
  Company Number: IT-BAYER-2017-120111

PATIENT
  Age: 86 Year
  Sex: Male

DRUGS (4)
  1. LASIX [Concomitant]
     Active Substance: FUROSEMIDE
     Route: 048
  2. LANTUS [Interacting]
     Active Substance: INSULIN GLARGINE
     Indication: DIABETES MELLITUS
     Route: 058
  3. REPAGLINIDE. [Interacting]
     Active Substance: REPAGLINIDE
     Indication: DIABETES MELLITUS
     Route: 048
  4. ASPIRINA 500 MG [Suspect]
     Active Substance: ASPIRIN
     Route: 048

REACTIONS (5)
  - Confusional state [Unknown]
  - Drug interaction [Unknown]
  - Hypoglycaemia [Unknown]
  - Diarrhoea [Unknown]
  - Vomiting [Unknown]

NARRATIVE: CASE EVENT DATE: 20170406
